FAERS Safety Report 6000304-5 (Version None)
Quarter: 2008Q4

REPORT INFORMATION
  Report Type: 
  Country: None (occurrence: None)
  Receive Date: 20081215
  Receipt Date: 20081203
  Transmission Date: 20090506
  Serious: Yes (Hospitalization)
  Sender: FDA-Public Use
  Company Number: DE-ROCHE-601174

PATIENT
  Age: 26 Year
  Sex: Female

DRUGS (2)
  1. CELLCEPT [Suspect]
     Route: 048
  2. CELLCEPT [Suspect]
     Route: 048
     Dates: start: 20081202, end: 20081202

REACTIONS (3)
  - ADVERSE EVENT [None]
  - OVERDOSE [None]
  - SUICIDE ATTEMPT [None]
